FAERS Safety Report 17855177 (Version 1)
Quarter: 2020Q2

REPORT INFORMATION
  Report Type: Spontaneous
  Country: US (occurrence: US)
  Receive Date: 20200602
  Receipt Date: 20200602
  Transmission Date: 20200714
  Serious: Yes (Hospitalization)
  Sender: FDA-Public Use
  Company Number: None

PATIENT
  Age: 61 Year
  Sex: Male
  Weight: 81.65 kg

DRUGS (1)
  1. ALLOPURINOL (ALLOPURINOL 300MG TAB) [Suspect]
     Active Substance: ALLOPURINOL
     Route: 048
     Dates: start: 20191127, end: 20200125

REACTIONS (8)
  - Wheezing [None]
  - Pruritus [None]
  - Rash [None]
  - Cough [None]
  - Delirium [None]
  - Urticaria [None]
  - Mucosal dryness [None]
  - Myalgia [None]

NARRATIVE: CASE EVENT DATE: 20200124
